FAERS Safety Report 7756647-8 (Version None)
Quarter: 2011Q3

REPORT INFORMATION
  Report Type: 
  Country: None (occurrence: None)
  Receive Date: 20110908
  Receipt Date: 20110831
  Transmission Date: 20111222
  Serious: Yes (Hospitalization)
  Sender: FDA-Public Use
  Company Number: 2011028991

PATIENT
  Age: 67 Year
  Sex: Male

DRUGS (1)
  1. PRIVIGEN (IMMUNOGLOBULIN HUMAN NORMAL) LOT# 4328500010 [Suspect]
     Indication: NON-HODGKIN'S LYMPHOMA
     Dosage: 20 G
     Dates: start: 20110415, end: 20110415

REACTIONS (3)
  - CARDIAC FAILURE [None]
  - STAPHYLOCOCCAL SEPSIS [None]
  - PNEUMONIA [None]
